FAERS Safety Report 16761915 (Version 1)
Quarter: 2019Q3

REPORT INFORMATION
  Report Type: Report from Study
  Country: BR (occurrence: BR)
  Receive Date: 20190830
  Receipt Date: 20190830
  Transmission Date: 20191005
  Serious: Yes (Other)
  Sender: FDA-Public Use
  Company Number: BR-BRISTOL-MYERS SQUIBB COMPANY-BMS-2019-082170

PATIENT
  Sex: Female

DRUGS (1)
  1. ABATACEPT [Suspect]
     Active Substance: ABATACEPT
     Indication: RHEUMATOID ARTHRITIS
     Dosage: 1 DOSAGE FORM=THREE 250 MG VIALS, QMO
     Route: 042

REACTIONS (3)
  - Eye disorder [Recovered/Resolved]
  - Photosensitivity reaction [Recovered/Resolved]
  - Eye swelling [Recovered/Resolved]
